FAERS Safety Report 11428526 (Version 1)
Quarter: 2015Q3

REPORT INFORMATION
  Report Type: Spontaneous
  Country: US (occurrence: None)
  Receive Date: 20150827
  Receipt Date: 20150827
  Transmission Date: 20151125
  Serious: No
  Sender: FDA-Public Use
  Company Number: None

PATIENT
  Age: 35 Year
  Sex: Female
  Weight: 55.34 kg

DRUGS (7)
  1. ADDERALL [Concomitant]
     Active Substance: AMPHETAMINE ASPARTATE\AMPHETAMINE SULFATE\DEXTROAMPHETAMINE SACCHARATE\DEXTROAMPHETAMINE SULFATE
  2. VITAMIN C [Concomitant]
     Active Substance: ASCORBIC ACID
  3. BIOTIN [Concomitant]
     Active Substance: BIOTIN
  4. PANTOTHENIC ACID [Concomitant]
     Active Substance: PANTOTHENIC ACID
  5. AZELESTINE [Suspect]
     Active Substance: AZELASTINE
     Indication: NASAL CONGESTION
     Dosage: 1-2 SPRAYS TWICE DAILY INHALATION
     Route: 055
     Dates: start: 20150716, end: 20150825
  6. WOMEN^S MULTIVITAMIN [Concomitant]
  7. VITAMIN B12 [Concomitant]
     Active Substance: CYANOCOBALAMIN

REACTIONS (3)
  - Vision blurred [None]
  - Dysgeusia [None]
  - Cough [None]

NARRATIVE: CASE EVENT DATE: 20150806
